FAERS Safety Report 6056529-6 (Version None)
Quarter: 2009Q1

REPORT INFORMATION
  Report Type: 
  Country: None (occurrence: None)
  Receive Date: 20090129
  Receipt Date: 20090114
  Transmission Date: 20090719
  Serious: Yes (Hospitalization)
  Sender: FDA-Public Use
  Company Number: DE-ASTRAZENECA-2009SE00541

PATIENT
  Age: 58 Year
  Sex: Female
  Weight: 65 kg

DRUGS (6)
  1. METOPROLOL TARTRATE AND HYDROCHLOROTHIAZIDE [Suspect]
     Indication: HYPERTENSION
     Route: 048
  2. LYRICA [Suspect]
     Indication: NEUROPATHY PERIPHERAL
     Route: 048
  3. MANINIL [Suspect]
     Indication: TYPE 2 DIABETES MELLITUS
     Route: 048
     Dates: end: 20081026
  4. CITALOPRAM HYDROBROMIDE [Concomitant]
     Indication: DEPRESSION
  5. DELIX PLUS [Concomitant]
     Indication: HYPERTENSION
     Route: 048
  6. EBIXA [Concomitant]
     Indication: DEMENTIA

REACTIONS (1)
  - HYPOGLYCAEMIA [None]
